FAERS Safety Report 8350343-4 (Version None)
Quarter: 2012Q2

REPORT INFORMATION
  Report Type: 
  Country: None (occurrence: None)
  Receive Date: 20120510
  Receipt Date: 20120427
  Transmission Date: 20120825
  Serious: Yes (Other)
  Sender: FDA-Public Use
  Company Number: US-ROCHE-1064640

PATIENT
  Age: 70 Year
  Sex: Male
  Weight: 88.984 kg

DRUGS (2)
  1. AVASTIN [Suspect]
     Indication: COLORECTAL CANCER METASTATIC
     Route: 042
     Dates: end: 20120411
  2. FLUOROURACIL [Concomitant]
     Indication: COLORECTAL CANCER METASTATIC
     Route: 042

REACTIONS (6)
  - CHAPPED LIPS [None]
  - ORAL PAIN [None]
  - DECREASED APPETITE [None]
  - EPISTAXIS [None]
  - AGEUSIA [None]
  - LACRIMAL DISORDER [None]
